FAERS Safety Report 7017878-8 (Version None)
Quarter: 2010Q3

REPORT INFORMATION
  Report Type: 
  Country: None (occurrence: None)
  Receive Date: 20100928
  Receipt Date: 20100915
  Transmission Date: 20110219
  Serious: Yes (Hospitalization)
  Sender: FDA-Public Use
  Company Number: US-SANOFI-AVENTIS-2010SA040578

PATIENT
  Age: 61 Year
  Sex: Female
  Weight: 111.18 kg

DRUGS (8)
  1. MULTAQ [Suspect]
     Indication: ATRIAL FIBRILLATION
     Route: 048
     Dates: start: 20100517, end: 20100523
  2. PERCOCET [Suspect]
     Route: 065
  3. COUMADIN [Concomitant]
     Dosage: DOSE:5 UNIT(S)
  4. LOTREL [Concomitant]
     Dosage: 10/20
  5. DIOVAN HCT [Concomitant]
     Dosage: 160/12.5
  6. LIPITOR [Concomitant]
     Dosage: DOSE:20 UNIT(S)
  7. ZETIA [Concomitant]
     Dosage: DOSE:10 UNIT(S)
  8. ZOLOFT [Concomitant]
     Dosage: DOSE:100 UNIT(S)

REACTIONS (2)
  - CEREBROVASCULAR ACCIDENT [None]
  - LIVER FUNCTION TEST ABNORMAL [None]
